FAERS Safety Report 8913000 (Version 1)
Quarter: 2012Q4

REPORT INFORMATION
  Report Type: Spontaneous
  Country: US (occurrence: None)
  Receive Date: 20121114
  Receipt Date: 20121114
  Transmission Date: 20130627
  Serious: Yes (Other)
  Sender: FDA-Public Use
  Company Number: None

PATIENT
  Age: 21 Year
  Sex: Female
  Weight: 78.47 kg

DRUGS (2)
  1. ACYCLOVIR [Suspect]
     Indication: HERPES SIMPLEX
     Route: 048
     Dates: start: 20120925, end: 20121002
  2. CLOZAPINE [Suspect]
     Route: 048
     Dates: start: 20120306, end: 20121001

REACTIONS (2)
  - White blood cell count decreased [None]
  - Neutrophil count decreased [None]
